FAERS Safety Report 12322169 (Version 2)
Quarter: 2016Q2

REPORT INFORMATION
  Report Type: Spontaneous
  Country: HK (occurrence: HK)
  Receive Date: 20160502
  Receipt Date: 20160614
  Transmission Date: 20160815
  Serious: Yes (Death, Hospitalization, Other)
  Sender: FDA-Public Use
  Company Number: HK-CELGENEUS-HKG-2015073859

PATIENT
  Age: 66 Year
  Sex: Male
  Weight: 52.2 kg

DRUGS (1)
  1. AZACITIDINE INJECTABLE [Suspect]
     Active Substance: AZACITIDINE
     Indication: MYELODYSPLASTIC SYNDROME
     Route: 058
     Dates: start: 20150526, end: 20150629

REACTIONS (1)
  - Escherichia sepsis [Fatal]

NARRATIVE: CASE EVENT DATE: 20150704
